FAERS Safety Report 7676264-8 (Version None)
Quarter: 2011Q3

REPORT INFORMATION
  Report Type: 
  Country: None (occurrence: None)
  Receive Date: 20110805
  Receipt Date: 20110721
  Transmission Date: 20111222
  Serious: No
  Sender: FDA-Public Use
  Company Number: SPI201100204

PATIENT
  Sex: Female

DRUGS (1)
  1. AMITIZA [Suspect]
     Dosage: 8 MCG, BID, ORAL 24 MCG, BID, ORAL 8 MCG, BID, ORAL
     Route: 048

REACTIONS (1)
  - DYSPNOEA [None]
